FAERS Safety Report 9342996 (Version 1)
Quarter: 2013Q2

REPORT INFORMATION
  Report Type: Spontaneous
  Country: CA (occurrence: CA)
  Receive Date: 20130611
  Receipt Date: 20130611
  Transmission Date: 20140414
  Serious: Yes (Other)
  Sender: FDA-Public Use
  Company Number: CA-BRISTOL-MYERS SQUIBB COMPANY-18989590

PATIENT
  Age: 60 Year
  Sex: Male

DRUGS (1)
  1. SPRYCEL [Suspect]
     Indication: CHRONIC MYELOID LEUKAEMIA
     Dosage: OFF THE DRUG FROM 6AP13-17AP13
     Route: 048
     Dates: start: 20121101

REACTIONS (2)
  - Suicidal ideation [Unknown]
  - Depression [Unknown]
